FAERS Safety Report 9205972 (Version 2)
Quarter: 2013Q2

REPORT INFORMATION
  Report Type: Report from Study
  Country: US (occurrence: US)
  Receive Date: 20130403
  Receipt Date: 20130513
  Transmission Date: 20140414
  Serious: Yes (Hospitalization, Other)
  Sender: FDA-Public Use
  Company Number: US-JNJFOC-20130303190

PATIENT
  Sex: 0

DRUGS (11)
  1. DOXORUBICIN HYDROCHLORIDE (DOXIL) [Suspect]
     Indication: DIFFUSE LARGE B-CELL LYMPHOMA
     Dosage: COHORT II, 6 SUBJECTS 25 MG/ME2
     Route: 042
  2. DOXORUBICIN HYDROCHLORIDE (DOXIL) [Suspect]
     Indication: DIFFUSE LARGE B-CELL LYMPHOMA
     Dosage: COHORT 1, 3 SUBJECTS, 20 MG/ME2
     Route: 042
  3. DOXORUBICIN HYDROCHLORIDE (DOXIL) [Suspect]
     Indication: DIFFUSE LARGE B-CELL LYMPHOMA
     Dosage: COHORT III, 8 SUBJECTS 30 MG/ME2
     Route: 042
  4. CYCLOPHOSPHAMIDE [Suspect]
     Indication: DIFFUSE LARGE B-CELL LYMPHOMA
     Dosage: DAYS 1-5, 750 MG/ME2
     Route: 065
  5. VINCRISTINE [Suspect]
     Indication: DIFFUSE LARGE B-CELL LYMPHOMA
     Dosage: 1.4 MG/ME2
     Route: 065
  6. PREDNISOLONE [Suspect]
     Indication: DIFFUSE LARGE B-CELL LYMPHOMA
     Dosage: DAYS 1-5
     Route: 048
  7. RITUXIMAB [Suspect]
     Indication: DIFFUSE LARGE B-CELL LYMPHOMA
     Dosage: ON DAY 1
     Route: 065
  8. NEULASTA [Suspect]
     Indication: DIFFUSE LARGE B-CELL LYMPHOMA
     Dosage: DAY 2 0F 14 DAY CYCLE
     Route: 058
  9. DICLOXACILLIN [Suspect]
     Indication: DIFFUSE LARGE B-CELL LYMPHOMA
     Dosage: COHORT III 30 MG/ME2
     Route: 065
  10. DICLOXACILLIN [Suspect]
     Indication: DIFFUSE LARGE B-CELL LYMPHOMA
     Dosage: COHORT I, 20 MG/ME2
     Route: 065
  11. DICLOXACILLIN [Suspect]
     Indication: DIFFUSE LARGE B-CELL LYMPHOMA
     Dosage: COHORT II 25 MG/ME2
     Route: 065

REACTIONS (8)
  - Febrile neutropenia [Unknown]
  - Neutropenia [Unknown]
  - Hyperglycaemia [Unknown]
  - Palmar-plantar erythrodysaesthesia syndrome [Unknown]
  - Disease progression [Unknown]
  - Stomatitis [Unknown]
  - Thrombocytopenia [Unknown]
  - Cardiac disorder [Unknown]
